FAERS Safety Report 26120459 (Version 2)
Quarter: 2025Q4

REPORT INFORMATION
  Report Type: Spontaneous
  Country: US (occurrence: US)
  Receive Date: 20251204
  Receipt Date: 20251219
  Transmission Date: 20260118
  Serious: Yes (Hospitalization, Other)
  Sender: TEVA
  Company Number: US-TEVA-VS-3396780

PATIENT
  Age: 57 Year
  Sex: Male

DRUGS (7)
  1. PREDNISONE [Suspect]
     Active Substance: PREDNISONE
     Indication: Immune-mediated lung disease
     Dosage: GRADUAL TAPER OF DOSE AT 10MG PER WEEK
     Route: 065
  2. PREDNISONE [Suspect]
     Active Substance: PREDNISONE
     Indication: Immune-mediated lung disease
     Dosage: DOSE TAPERED GRADUALLY
     Route: 065
  3. PREDNISONE [Suspect]
     Active Substance: PREDNISONE
     Indication: Immune-mediated lung disease
     Dosage: DOSE TAPERED AT 10 TO 20MG
     Route: 065
  4. PREDNISONE [Suspect]
     Active Substance: PREDNISONE
     Indication: Immune-mediated lung disease
     Dosage: DOSE TAPERED GRADUALLY
     Route: 065
  5. PREDNISONE [Suspect]
     Active Substance: PREDNISONE
     Indication: Immune-mediated lung disease
     Route: 065
  6. PREDNISONE [Suspect]
     Active Substance: PREDNISONE
     Indication: Immune-mediated lung disease
     Dosage: DOSE INCREASED MULTIPLE TIMES OVER THE COURSE OF SEVERAL MONTHS
     Route: 065
  7. HEPARIN [Suspect]
     Active Substance: HEPARIN SODIUM
     Indication: Pulmonary embolism
     Route: 065

REACTIONS (6)
  - Diabetes mellitus [Recovering/Resolving]
  - Therapy non-responder [Unknown]
  - Asthenia [Recovering/Resolving]
  - Affective disorder [Recovering/Resolving]
  - Dizziness postural [Recovering/Resolving]
  - Rebound effect [Unknown]
